FAERS Safety Report 7273930-3 (Version None)
Quarter: 2011Q1

REPORT INFORMATION
  Report Type: 
  Country: None (occurrence: None)
  Receive Date: 20110203
  Receipt Date: 20110126
  Transmission Date: 20110831
  Serious: Yes (Death, Life-Threatening)
  Sender: FDA-Public Use
  Company Number: US-GILEAD-2011-0034834

PATIENT
  Sex: Male

DRUGS (8)
  1. ISOSORBIDE DINITRATE [Concomitant]
     Indication: ANGINA PECTORIS
     Dates: start: 20040107
  2. MAXZIDE [Concomitant]
     Indication: HYPERTENSION
     Dates: start: 20020101
  3. LETAIRIS [Suspect]
     Indication: PULMONARY ARTERIAL HYPERTENSION
     Route: 048
     Dates: start: 20090401
  4. CLODIPROGREL [Concomitant]
     Indication: ANGINA PECTORIS
     Dates: start: 20040107
  5. NITROGLYCERIN [Concomitant]
     Indication: ANGINA PECTORIS
     Dates: start: 20040107
  6. ATORVASTATIN [Concomitant]
     Indication: CORONARY ARTERY DISEASE
     Dates: start: 20040107
  7. FAMOTADINE [Concomitant]
     Indication: PEPTIC ULCER
     Dates: start: 20020610
  8. METOPROLOL [Concomitant]
     Indication: CORONARY ARTERY DISEASE
     Dates: start: 20040107

REACTIONS (1)
  - CARDIAC ARREST [None]
